FAERS Safety Report 9637716 (Version 1)
Quarter: 2013Q4

REPORT INFORMATION
  Report Type: Report from Study
  Country: SI (occurrence: SI)
  Receive Date: 20131022
  Receipt Date: 20131022
  Transmission Date: 20140711
  Serious: Yes (Hospitalization, Other)
  Sender: FDA-Public Use
  Company Number: SI-BAYER-2013-126859

PATIENT
  Age: 55 Year
  Sex: Female

DRUGS (1)
  1. BETAFERON [Suspect]
     Indication: SECONDARY PROGRESSIVE MULTIPLE SCLEROSIS
     Dosage: 1 DF, QOD
     Route: 058
     Dates: end: 2013

REACTIONS (4)
  - Multiple sclerosis [None]
  - Hallucination [None]
  - Inflammatory marker increased [None]
  - Infected skin ulcer [None]
